FAERS Safety Report 16747698 (Version 1)
Quarter: 2019Q3

REPORT INFORMATION
  Report Type: Spontaneous
  Country: FR (occurrence: FR)
  Receive Date: 20190827
  Receipt Date: 20190827
  Transmission Date: 20191005
  Serious: Yes (Hospitalization)
  Sender: FDA-Public Use
  Company Number: FR-TEVA-2019-FR-1097074

PATIENT
  Age: 60 Year
  Sex: Male

DRUGS (5)
  1. VANCOMYCINE [Concomitant]
     Active Substance: VANCOMYCIN
     Indication: HAEMATOMA
     Route: 041
     Dates: start: 20190723, end: 20190726
  2. IZALGI 500 MG/25 MG, GELULE [Suspect]
     Active Substance: ACETAMINOPHEN\OPIUM
     Indication: PRODUCT USED FOR UNKNOWN INDICATION
     Route: 048
     Dates: start: 20190716
  3. RIFADINE [Suspect]
     Active Substance: RIFAMPIN
     Indication: HAEMATOMA
     Route: 041
     Dates: start: 20190716
  4. CEFTRIAXONE BASE [Concomitant]
     Active Substance: CEFTRIAXONE
     Indication: HAEMATOMA
     Route: 041
     Dates: start: 20190723, end: 20190729
  5. PANTOPRAZOLE [Suspect]
     Active Substance: PANTOPRAZOLE
     Indication: PRODUCT USED FOR UNKNOWN INDICATION
     Route: 048
     Dates: start: 20190716

REACTIONS (1)
  - Vascular purpura [Not Recovered/Not Resolved]

NARRATIVE: CASE EVENT DATE: 20190725
